FAERS Safety Report 5988790-8 (Version None)
Quarter: 2008Q4

REPORT INFORMATION
  Report Type: 
  Country: None (occurrence: None)
  Receive Date: 20081208
  Receipt Date: 20081208
  Transmission Date: 20090506
  Serious: Yes (Disabling)
  Sender: FDA-Public Use
  Company Number: None

PATIENT
  Sex: Female
  Weight: 78.9259 kg

DRUGS (1)
  1. MIRENA [Suspect]
     Indication: CONTRACEPTION
     Dosage: 20 MICROGRAMS DAILY ENDOCERVICAL
     Route: 005
     Dates: start: 20081201, end: 20081203

REACTIONS (11)
  - BURNING SENSATION [None]
  - CERVIX DISORDER [None]
  - COMPLICATION OF DEVICE INSERTION [None]
  - DEPRESSED MOOD [None]
  - DISCOMFORT [None]
  - HEADACHE [None]
  - IMPAIRED WORK ABILITY [None]
  - IUCD COMPLICATION [None]
  - MENORRHAGIA [None]
  - PAIN [None]
  - VAGINAL DISCHARGE [None]
